FAERS Safety Report 7891549-8 (Version None)
Quarter: 2011Q4

REPORT INFORMATION
  Report Type: 
  Country: None (occurrence: None)
  Receive Date: 20111103
  Receipt Date: 20110804
  Transmission Date: 20120403
  Serious: No
  Sender: FDA-Public Use
  Company Number: US-AMGEN-USASP2011034530

PATIENT
  Age: 40 Year
  Sex: Female

DRUGS (3)
  1. ENBREL [Suspect]
     Indication: RHEUMATOID ARTHRITIS
     Dosage: 50 MG, QWK
     Route: 058
     Dates: start: 20110509, end: 20110703
  2. SYNTHROID [Concomitant]
     Dosage: 100 MG, UNK
     Route: 048
  3. ADVIL LIQUI-GELS [Concomitant]
     Route: 048

REACTIONS (2)
  - ALOPECIA [None]
  - NEUTROPENIA [None]
